FAERS Safety Report 4945228-7 (Version None)
Quarter: 2006Q1

REPORT INFORMATION
  Report Type: 
  Country: None (occurrence: None)
  Receive Date: 20060117
  Receipt Date: 20051026
  Transmission Date: 20060701
  Serious: Yes (Hospitalization)
  Sender: FDA-Public Use
  Company Number: A03200503422

PATIENT
  Age: 80 Year
  Sex: 0

DRUGS (2)
  1. PLAVIX [Suspect]
     Indication: TRANSIENT ISCHAEMIC ATTACK
     Dosage: 75 MG QD - ORAL
     Route: 048
     Dates: start: 20050401, end: 20051026
  2. ASPIRIN [Suspect]
     Indication: TRANSIENT ISCHAEMIC ATTACK
     Dosage: 81 MG QD - ORAL
     Route: 048
     Dates: start: 20050401, end: 20051026

REACTIONS (1)
  - GASTROINTESTINAL HAEMORRHAGE [None]
